FAERS Safety Report 8923381 (Version 3)
Quarter: 2012Q4

REPORT INFORMATION
  Report Type: 
  Country: CN (occurrence: CN)
  Receive Date: 20121124
  Receipt Date: 20121205
  Transmission Date: 20130627
  Serious: Yes (Other)
  Sender: FDA-Public Use
  Company Number: PHHY2012CN106725

PATIENT
  Age: 78 Year
  Sex: Female
  Weight: 62 kg

DRUGS (1)
  1. ACLASTA [Suspect]
     Dosage: UNK UKN, UNK
     Route: 042

REACTIONS (5)
  - Venous thrombosis [Recovered/Resolved]
  - Vasodilatation [Unknown]
  - Skin discolouration [Unknown]
  - Oedema peripheral [Unknown]
  - Pain [Unknown]
